FAERS Safety Report 8619089-9 (Version None)
Quarter: 2012Q3

REPORT INFORMATION
  Report Type: 
  Country: None (occurrence: None)
  Receive Date: 20120824
  Receipt Date: 20120823
  Transmission Date: 20120928
  Serious: Yes (Hospitalization)
  Sender: FDA-Public Use
  Company Number: PHHY2012IT072711

PATIENT
  Sex: Female

DRUGS (4)
  1. VALSARTAN  AND HYDROCHLOROTHIAZIDE [Suspect]
     Indication: HYPERTENSION
     Dosage: 1 DF, DAILY
     Route: 048
     Dates: start: 20110523, end: 20120522
  2. ALLOPURINOL [Concomitant]
  3. DONEPEZIL HCL [Concomitant]
  4. ZOLPIDEM [Concomitant]

REACTIONS (2)
  - CARDIAC ARREST [None]
  - HYPOKALAEMIA [None]
